FAERS Safety Report 14007093 (Version 1)
Quarter: 2017Q3

REPORT INFORMATION
  Report Type: Spontaneous
  Country: US (occurrence: US)
  Receive Date: 20170923
  Receipt Date: 20170923
  Transmission Date: 20171128
  Serious: Yes (Disabling, Congenital Anomaly)
  Sender: FDA-Public Use
  Company Number: None

PATIENT
  Sex: Female
  Weight: 112.5 kg

DRUGS (4)
  1. POSTNATAL MULTIVITAMIN [Concomitant]
  2. MAGNESIUM SUPPLEMENT [Concomitant]
  3. CITALOPRAM (CELEXA EQ) 40MG [Suspect]
     Active Substance: CITALOPRAM HYDROBROMIDE
     Indication: ANXIETY
     Dosage: ?          QUANTITY:1 TABLET(S);?AT BEDTIME ORAL
     Route: 048
     Dates: start: 20090505, end: 20170803
  4. NEXIUM [Concomitant]
     Active Substance: ESOMEPRAZOLE MAGNESIUM

REACTIONS (2)
  - Maternal drugs affecting foetus [None]
  - Talipes [None]

NARRATIVE: CASE EVENT DATE: 20170717
